FAERS Safety Report 4382052-0 (Version None)
Quarter: 2004Q2

REPORT INFORMATION
  Report Type: 
  Country: None (occurrence: None)
  Receive Date: 20040615
  Receipt Date: 20040527
  Transmission Date: 20050107
  Serious: Yes (Other)
  Sender: FDA-Public Use
  Company Number: A0508127A

PATIENT
  Age: 75 Year
  Sex: Female

DRUGS (7)
  1. COMMIT [Suspect]
     Indication: EX-SMOKER
     Dosage: 4 MG AS REQUIRED TRANSBUCCAL
     Dates: start: 20040315
  2. ROFECOXIB (FORMULATION UNKNOWN) (ROFECOXIB) [Suspect]
     Indication: ARTHRITIS
     Dosage: ORAL
     Route: 048
     Dates: end: 20040301
  3. HYDRALAZINE HCL [Suspect]
     Indication: HYPERTENSION
     Dosage: ORAL
     Route: 048
     Dates: end: 20040401
  4. VERAPAMIL [Concomitant]
  5. FLUTICASONE-SALMETEROL [Concomitant]
  6. SALBUTAMOL SULPHATE [Concomitant]
  7. WARFARIN SODIUM [Concomitant]

REACTIONS (4)
  - DRUG INEFFECTIVE [None]
  - OEDEMA PERIPHERAL [None]
  - PULMONARY OEDEMA [None]
  - WEIGHT INCREASED [None]
